FAERS Safety Report 5280994-5 (Version None)
Quarter: 2007Q1

REPORT INFORMATION
  Report Type: 
  Country: None (occurrence: None)
  Receive Date: 20061229
  Receipt Date: 20060808
  Transmission Date: 20070707
  Serious: Yes (Other)
  Sender: FDA-Public Use
  Company Number: 2006UW15815

PATIENT
  Age: 59 Year
  Sex: Male
  Weight: 68.038 kg

DRUGS (9)
  1. CRESTOR [Suspect]
     Indication: BLOOD CHOLESTEROL INCREASED
     Dosage: 10 MG PO
     Route: 048
     Dates: start: 20060801
  2. TENORETIC 100 [Concomitant]
  3. FEXOFENADINE [Concomitant]
  4. UROXATRAL [Concomitant]
  5. CELEBREX [Concomitant]
  6. HYOSCYAMINE [Concomitant]
  7. NEXIUM ORAL [Concomitant]
  8. RHINOCORT AQUA [Concomitant]
  9. ANDROGEL [Concomitant]

REACTIONS (1)
  - HIGH DENSITY LIPOPROTEIN DECREASED [None]
